FAERS Safety Report 16331278 (Version 1)
Quarter: 2019Q2

REPORT INFORMATION
  Report Type: Report from Study
  Country: US (occurrence: US)
  Receive Date: 20190520
  Receipt Date: 20190520
  Transmission Date: 20190711
  Serious: No
  Sender: FDA-Public Use
  Company Number: US-ACADIA PHARMACEUTICALS INC.-ACA-2019-011868

PATIENT
  Age: 75 Year
  Sex: Male

DRUGS (4)
  1. NUPLAZID [Suspect]
     Active Substance: PIMAVANSERIN TARTRATE
     Indication: HALLUCINATION
     Dosage: 34 MG, QD
     Route: 048
     Dates: start: 20190207, end: 201903
  2. NUPLAZID [Suspect]
     Active Substance: PIMAVANSERIN TARTRATE
     Indication: PARKINSON^S DISEASE PSYCHOSIS
  3. NUPLAZID [Suspect]
     Active Substance: PIMAVANSERIN TARTRATE
     Indication: DELUSION
  4. NUPLAZID [Suspect]
     Active Substance: PIMAVANSERIN TARTRATE
     Indication: DEMENTIA

REACTIONS (9)
  - Balance disorder [Unknown]
  - Drug ineffective [Unknown]
  - Hallucination, visual [Unknown]
  - Product dose omission [Unknown]
  - Communication disorder [Not Recovered/Not Resolved]
  - Delusion [Not Recovered/Not Resolved]
  - Panic reaction [Unknown]
  - Nonspecific reaction [Unknown]
  - Confusional state [Unknown]

NARRATIVE: CASE EVENT DATE: 201902
